FAERS Safety Report 11832615 (Version 2)
Quarter: 2015Q4

REPORT INFORMATION
  Report Type: Spontaneous
  Country: US (occurrence: JP)
  Receive Date: 20151214
  Receipt Date: 20151231
  Transmission Date: 20160305
  Serious: No
  Sender: FDA-Public Use
  Company Number: JP-AKRON, INC.-1045447

PATIENT
  Age: 66 Year
  Sex: Female

DRUGS (5)
  1. ZIOPTAN [Suspect]
     Active Substance: TAFLUPROST
     Indication: NORMAL TENSION GLAUCOMA
     Route: 031
     Dates: start: 20120906, end: 20141003
  2. DOGMATYL (SULPIRIDE) TABLET [Concomitant]
  3. SOLANAX (ALPRAZOLAM) TABLET [Concomitant]
  4. LENDORMIN (BROTIZOLAM) TABLET [Concomitant]
     Active Substance: BROTIZOLAM
  5. TEARBALANCE (HYALURONATE SODIUM) [Concomitant]

REACTIONS (1)
  - Cataract operation [Unknown]

NARRATIVE: CASE EVENT DATE: 20141003
